FAERS Safety Report 4519594-0 (Version None)
Quarter: 2004Q4

REPORT INFORMATION
  Report Type: 
  Country: None (occurrence: None)
  Receive Date: 20041206
  Receipt Date: 20041130
  Transmission Date: 20050328
  Serious: Yes (Death, Life-Threatening, Hospitalization, Disabling)
  Sender: FDA-Public Use
  Company Number: US-MERCK-0412USA00021

PATIENT
  Age: 64 Year
  Sex: Male

DRUGS (2)
  1. VIOXX [Suspect]
     Indication: ARTHRITIS
     Route: 048
     Dates: start: 20010501, end: 20010601
  2. VIOXX [Suspect]
     Route: 048
     Dates: start: 20010501, end: 20010601

REACTIONS (2)
  - COMA [None]
  - MYOCARDIAL INFARCTION [None]
